FAERS Safety Report 10393712 (Version 2)
Quarter: 2014Q3

REPORT INFORMATION
  Report Type: Spontaneous
  Country: IT (occurrence: IT)
  Receive Date: 20140819
  Receipt Date: 20140826
  Transmission Date: 20150326
  Serious: Yes (Hospitalization, Other)
  Sender: FDA-Public Use
  Company Number: IT-PFIZER INC-2014226590

PATIENT
  Age: 43 Year
  Sex: Male

DRUGS (10)
  1. LORAZEPAM. [Suspect]
     Active Substance: LORAZEPAM
     Dosage: UNK
     Route: 048
     Dates: start: 20140131, end: 20140131
  2. REBETOL [Concomitant]
     Active Substance: RIBAVIRIN
     Indication: HEPATITIS C
     Dosage: UNK
  3. PEGINTRON [Concomitant]
     Active Substance: PEGINTERFERON ALFA-2B
     Indication: HEPATITIS C
     Dosage: UNK
  4. LYRICA [Suspect]
     Active Substance: PREGABALIN
     Indication: ADJUSTMENT DISORDER
     Dosage: 150 MG, DAILY
     Route: 048
     Dates: start: 20130803, end: 20140130
  5. LYRICA [Suspect]
     Active Substance: PREGABALIN
     Indication: ANXIETY
     Dosage: UNK
     Route: 048
     Dates: start: 20140131, end: 20140131
  6. FLURAZEPAM [Suspect]
     Active Substance: FLURAZEPAM\FLURAZEPAM HYDROCHLORIDE
     Indication: DEPRESSION
  7. FLURAZEPAM [Suspect]
     Active Substance: FLURAZEPAM\FLURAZEPAM HYDROCHLORIDE
     Indication: ADJUSTMENT DISORDER
     Dosage: 30 MG, DAILY
     Route: 048
     Dates: start: 20130803, end: 20140130
  8. LYRICA [Suspect]
     Active Substance: PREGABALIN
     Indication: DEPRESSION
  9. LORAZEPAM. [Suspect]
     Active Substance: LORAZEPAM
     Indication: DRUG DEPENDENCE
     Dosage: 2.5 MG, AS NEEDED
     Route: 048
     Dates: start: 20090101, end: 20140130
  10. FLURAZEPAM [Suspect]
     Active Substance: FLURAZEPAM\FLURAZEPAM HYDROCHLORIDE
     Indication: ANXIETY
     Dosage: UNK
     Dates: start: 20140131, end: 20140131

REACTIONS (9)
  - Sopor [Recovered/Resolved]
  - Mydriasis [Recovered/Resolved]
  - Suicidal ideation [Unknown]
  - Agitation [Recovered/Resolved]
  - Aggression [Unknown]
  - Hallucination, auditory [Unknown]
  - Confusional state [Unknown]
  - Oppositional defiant disorder [Unknown]
  - Drug abuse [Recovered/Resolved]

NARRATIVE: CASE EVENT DATE: 20140131
